FAERS Safety Report 5122933-3 (Version None)
Quarter: 2006Q4

REPORT INFORMATION
  Report Type: 
  Country: None (occurrence: None)
  Receive Date: 20061005
  Receipt Date: 20061005
  Transmission Date: 20070319
  Serious: Yes (Death, Hospitalization)
  Sender: FDA-Public Use
  Company Number: None

PATIENT
  Age: 55 Year
  Sex: Male
  Weight: 91.7 kg

DRUGS (7)
  1. BUSULFAN MUD TRANSPLANT [Suspect]
     Indication: ACUTE MYELOID LEUKAEMIA
     Dosage: 50 MG/PO
     Route: 048
     Dates: start: 20060727, end: 20060730
  2. BUSULFAN MUD TRANSPLANT [Suspect]
     Indication: CHEMOTHERAPY
     Dosage: 50 MG/PO
     Route: 048
     Dates: start: 20060727, end: 20060730
  3. CYTOXAN [Suspect]
     Indication: ACUTE MYELOID LEUKAEMIA
     Dosage: 4900 MG/QD/IV
     Route: 042
     Dates: start: 20060731, end: 20060802
  4. CYTOXAN [Suspect]
     Indication: CHEMOTHERAPY
     Dosage: 4900 MG/QD/IV
     Route: 042
     Dates: start: 20060731, end: 20060802
  5. ESOMEPRAZOLE MAGNESIUM [Concomitant]
  6. DIPHENHYDRAMINE HCL [Concomitant]
  7. HYDROMORPONE [Concomitant]

REACTIONS (6)
  - ABDOMINAL PAIN [None]
  - ASCITES [None]
  - BLOOD BILIRUBIN ABNORMAL [None]
  - GENERAL PHYSICAL HEALTH DETERIORATION [None]
  - OEDEMA [None]
  - STEM CELL TRANSPLANT [None]
